FAERS Safety Report 7779858-4 (Version None)
Quarter: 2011Q3

REPORT INFORMATION
  Report Type: 
  Country: None (occurrence: None)
  Receive Date: 20110927
  Receipt Date: 20100824
  Transmission Date: 20111222
  Serious: No
  Sender: FDA-Public Use
  Company Number: US-ASTRAZENECA-2010SE39906

PATIENT
  Age: 54 Year
  Sex: Female
  Weight: 88.9 kg

DRUGS (11)
  1. ASPIRIN [Concomitant]
     Dates: start: 20070504
  2. EFFEXOR [Concomitant]
     Dates: start: 20070504
  3. ACTOS [Concomitant]
     Dates: start: 20070504
  4. METFORMIN HCL [Concomitant]
     Dates: start: 20070504
  5. ABILIFY [Concomitant]
     Dosage: 15 MG PO AFTER BREAKFAST
     Route: 048
     Dates: start: 20050526
  6. CRESTOR [Concomitant]
     Dates: start: 20070504
  7. ACIPHEX [Concomitant]
     Dates: start: 20070504
  8. SEROQUEL [Suspect]
     Route: 048
     Dates: start: 20050526
  9. AMBIEN [Concomitant]
     Route: 048
     Dates: start: 20050526
  10. TOPAMAX [Concomitant]
     Dosage: 50 MG PER WEEK
     Route: 048
     Dates: start: 20050526
  11. PAXIL CR [Concomitant]
     Route: 048
     Dates: start: 20050526

REACTIONS (4)
  - TYPE 2 DIABETES MELLITUS [None]
  - HYPERLIPIDAEMIA [None]
  - ABDOMINAL DISTENSION [None]
  - GASTROOESOPHAGEAL REFLUX DISEASE [None]
